FAERS Safety Report 19266871 (Version 1)
Quarter: 2021Q2

REPORT INFORMATION
  Report Type: Spontaneous
  Country: CN (occurrence: CN)
  Receive Date: 20210518
  Receipt Date: 20210518
  Transmission Date: 20210717
  Serious: Yes (Other)
  Sender: FDA-Public Use
  Company Number: CN-ASTRAZENECA-2021A427780

PATIENT
  Age: 4747 Day
  Sex: Male
  Weight: 43 kg

DRUGS (3)
  1. SODIUM CHLORIDE. [Concomitant]
     Active Substance: SODIUM CHLORIDE
     Indication: VEHICLE SOLUTION USE
     Route: 045
     Dates: start: 20210508, end: 20210509
  2. BUDESONIDE SOLUTION [Suspect]
     Active Substance: BUDESONIDE
     Indication: RESPIRATORY TRACT INFLAMMATION
     Route: 055
     Dates: start: 20210509, end: 20210509
  3. BUDESONIDE SOLUTION [Suspect]
     Active Substance: BUDESONIDE
     Indication: RESPIRATORY TRACT INFLAMMATION
     Route: 055
     Dates: start: 20210508, end: 20210508

REACTIONS (1)
  - Hypoaesthesia [Recovering/Resolving]

NARRATIVE: CASE EVENT DATE: 20210508
